FAERS Safety Report 19229713 (Version 1)
Quarter: 2021Q2

REPORT INFORMATION
  Report Type: Spontaneous
  Country: GB (occurrence: GB)
  Receive Date: 20210506
  Receipt Date: 20210506
  Transmission Date: 20210717
  Serious: Yes (Other)
  Sender: FDA-Public Use
  Company Number: GB-TEVA-2021-GB-1906690

PATIENT
  Age: 49 Year
  Sex: Female
  Weight: 92 kg

DRUGS (4)
  1. CIPROFLOXACIN. [Suspect]
     Active Substance: CIPROFLOXACIN
     Indication: ILL-DEFINED DISORDER
     Dosage: 1000 MILLIGRAM DAILY; 500MG BD (HAD UNKNOWN DOSAGE OF IV CIPROFLOXACIN IN HOSPITAL)
     Route: 048
     Dates: start: 20210403, end: 20210416
  2. VAGIFEM [Concomitant]
     Active Substance: ESTRADIOL
     Indication: ILL-DEFINED DISORDER
  3. METRONIDAZOLE. [Concomitant]
     Active Substance: METRONIDAZOLE
     Indication: ILL-DEFINED DISORDER
  4. LANSOPRAZOLE. [Concomitant]
     Active Substance: LANSOPRAZOLE
     Indication: ILL-DEFINED DISORDER

REACTIONS (1)
  - Tendon pain [Not Recovered/Not Resolved]

NARRATIVE: CASE EVENT DATE: 20210405
